FAERS Safety Report 9789868 (Version 3)
Quarter: 2014Q2

REPORT INFORMATION
  Report Type: Spontaneous
  Country: US (occurrence: None)
  Receive Date: 20131227
  Receipt Date: 20140508
  Transmission Date: 20141212
  Serious: Yes (Other)
  Sender: FDA-Public Use
  Company Number: 2013SGN00857

PATIENT
  Age: 63 Year
  Sex: Male
  Weight: 117.1 kg

DRUGS (9)
  1. BRENTUXIMAB VEDOTIN [Suspect]
     Indication: GRAFT VERSUS HOST DISEASE
     Dosage: Q21D
     Route: 042
     Dates: start: 20131030, end: 20131119
  2. METOPROLOL (METOPROLOL TARTRATE) [Concomitant]
  3. LOSARTAN (LOSARTAN) [Concomitant]
  4. CELEXA (CITALOPRAM HYDROBROMIDE) [Concomitant]
  5. TACROLIMUS (TACROLIMUS) [Concomitant]
  6. ACYCLOVIR (ACYCLOVIR) [Concomitant]
  7. CIPRO (CIPROFLOXACIN HYDROCHLORIDE) [Concomitant]
  8. DAPSONE (DAPSONE) [Concomitant]
  9. FLUCONAZOLE (FLUCONAZOLE) [Concomitant]

REACTIONS (2)
  - Blood stem cell transplant failure [None]
  - Pancytopenia [None]
